FAERS Safety Report 7314997-3 (Version None)
Quarter: 2011Q1

REPORT INFORMATION
  Report Type: 
  Country: None (occurrence: None)
  Receive Date: 20110218
  Receipt Date: 20110218
  Transmission Date: 20110831
  Serious: Yes (Other)
  Sender: FDA-Public Use
  Company Number: None

PATIENT
  Age: 77 Year
  Sex: Male
  Weight: 90.7194 kg

DRUGS (4)
  1. LIPITOR [Suspect]
     Indication: BLOOD CHOLESTEROL INCREASED
     Dosage: DAILY PO
     Route: 048
  2. LIPITOR [Suspect]
     Indication: HYPERTENSION
     Dosage: DAILY PO
     Route: 048
  3. TRICOR [Suspect]
     Indication: BLOOD CHOLESTEROL INCREASED
     Dosage: DAILY PO
     Route: 048
  4. CRESTOR [Suspect]
     Indication: BLOOD CHOLESTEROL INCREASED
     Dosage: DAILY PO
     Route: 048

REACTIONS (2)
  - BALANCE DISORDER [None]
  - MUSCLE ATROPHY [None]
